FAERS Safety Report 16899901 (Version 1)
Quarter: 2019Q4

REPORT INFORMATION
  Report Type: Report from Study
  Country: US (occurrence: US)
  Receive Date: 20191009
  Receipt Date: 20191009
  Transmission Date: 20200122
  Serious: Yes (Other)
  Sender: FDA-Public Use
  Company Number: US-JNJFOC-20191001068

PATIENT
  Sex: Female

DRUGS (1)
  1. SPRAVATO [Suspect]
     Active Substance: ESKETAMINE
     Indication: PRODUCT USED FOR UNKNOWN INDICATION

REACTIONS (8)
  - Therapeutic response decreased [Unknown]
  - Feeling abnormal [Unknown]
  - Anxiety [Unknown]
  - Depression [Unknown]
  - Suicidal ideation [Unknown]
  - Hypoaesthesia [Unknown]
  - Agitation [Unknown]
  - Dry mouth [Unknown]
